FAERS Safety Report 5997298-5 (Version None)
Quarter: 2008Q4

REPORT INFORMATION
  Report Type: 
  Country: None (occurrence: None)
  Receive Date: 20081204
  Receipt Date: 20081118
  Transmission Date: 20090506
  Serious: Yes (Other)
  Sender: FDA-Public Use
  Company Number: B0548173A

PATIENT
  Age: 15 Year
  Sex: Male

DRUGS (10)
  1. TOPOTECAN HYDROCHLORIDE (FORMULATION UNKNOWN) (GENERIC) [Suspect]
     Indication: CHEMOTHERAPY
  2. HYDROCORTISONE (FORMULATION UNKNOWN) (GENERIC) [Suspect]
     Dosage: INTRATHECAL
     Route: 037
  3. MELPHALAN (FORMULATION UNKNOWN) (GENERIC) [Suspect]
  4. RADIOTHERAPY (FORMULATION UNKNOWN) (RADIOTHERAPY) [Suspect]
  5. CYCLOPHOSPHAMIDE [Suspect]
  6. METHOTREXATE [Suspect]
     Dosage: INTRATHECAL
     Route: 037
  7. CYTARABINE [Suspect]
     Dosage: INTRATHECAL
     Route: 037
  8. FLUDARABINE PHOSPHATE [Suspect]
  9. THIOTEPA (FORMULATION UNKNOWN) [Suspect]
  10. MUROMONAB-CD3 (FORMULATION UNKNOWN) [Suspect]

REACTIONS (14)
  - ABDOMINAL RIGIDITY [None]
  - ASTHENIA [None]
  - ATROPHY [None]
  - AUTOIMMUNE DISORDER [None]
  - BONE MARROW TRANSPLANT [None]
  - DRUG TOXICITY [None]
  - LEUKOENCEPHALOPATHY [None]
  - MICTURITION URGENCY [None]
  - MONOPLEGIA [None]
  - MYELOPATHY [None]
  - NEUROLOGICAL DECOMPENSATION [None]
  - NEUROTOXICITY [None]
  - SENSORY DISTURBANCE [None]
  - SPINAL CORD DISORDER [None]
